FAERS Safety Report 25969238 (Version 1)
Quarter: 2025Q4

REPORT INFORMATION
  Report Type: Report from Study
  Country: EU (occurrence: EU)
  Receive Date: 20251028
  Receipt Date: 20251028
  Transmission Date: 20260119
  Serious: Yes (Death)
  Sender: PFIZER
  Company Number: EU-AMGEN-ITASP2025205426

PATIENT
  Age: 33 Year
  Sex: Female

DRUGS (11)
  1. BEVACIZUMAB [Suspect]
     Active Substance: BEVACIZUMAB
     Indication: Nelson^s syndrome
     Dosage: TWO CYCLES
     Route: 065
  2. CABERGOLINE [Concomitant]
     Active Substance: CABERGOLINE
     Dosage: UNK
  3. CABERGOLINE [Concomitant]
     Active Substance: CABERGOLINE
     Dosage: UNK
  4. CABERGOLINE [Concomitant]
     Active Substance: CABERGOLINE
     Dosage: 3 MILLIGRAM, QWK
  5. CABERGOLINE [Concomitant]
     Active Substance: CABERGOLINE
     Dosage: BRIDGING THERAPY
  6. KETOCONAZOLE [Concomitant]
     Active Substance: KETOCONAZOLE
     Dosage: UNK
  7. TEMOZOLOMIDE [Concomitant]
     Active Substance: TEMOZOLOMIDE
     Dosage: 200 MG/M2, CYCLIC (FOR 5 DAYS EVERY 28 DAYS)
     Route: 048
  8. TEMOZOLOMIDE [Concomitant]
     Active Substance: TEMOZOLOMIDE
     Dosage: DOSE REDUCTION
  9. TEMOZOLOMIDE [Concomitant]
     Active Substance: TEMOZOLOMIDE
     Dosage: 40 MILLIGRAM, QD
     Route: 048
     Dates: start: 202206
  10. PASIREOTIDE [Concomitant]
     Active Substance: PASIREOTIDE
     Dosage: 40 MG, MONTHLY (LAR)
  11. EVEROLIMUS [Concomitant]
     Active Substance: EVEROLIMUS
     Dosage: FOUR CYCLES

REACTIONS (1)
  - Drug ineffective [Fatal]
